FAERS Safety Report 10670113 (Version 1)
Quarter: 2014Q4

REPORT INFORMATION
  Report Type: Spontaneous
  Country: US (occurrence: US)
  Receive Date: 20141223
  Receipt Date: 20141223
  Transmission Date: 20150529
  Serious: No
  Sender: FDA-Public Use
  Company Number: US-AMGEN-USASP2014098512

PATIENT
  Age: 37 Year
  Sex: Female

DRUGS (1)
  1. ENBREL [Suspect]
     Active Substance: ETANERCEPT
     Indication: HIDRADENITIS
     Dosage: 50 MG, QWK
     Route: 065
     Dates: start: 201202

REACTIONS (2)
  - Nausea [Not Recovered/Not Resolved]
  - Vomiting in pregnancy [Not Recovered/Not Resolved]

NARRATIVE: CASE EVENT DATE: 2014
